FAERS Safety Report 22616532 (Version 1)
Quarter: 2023Q2

REPORT INFORMATION
  Report Type: Report from Study
  Country: US (occurrence: US)
  Receive Date: 20230619
  Receipt Date: 20230619
  Transmission Date: 20230721
  Serious: Yes (Other)
  Sender: FDA-Public Use
  Company Number: US-ABBVIE-5293751

PATIENT
  Sex: Female

DRUGS (1)
  1. RINVOQ [Suspect]
     Active Substance: UPADACITINIB
     Indication: Rheumatoid arthritis
     Route: 048

REACTIONS (8)
  - Urinary tract disorder [Unknown]
  - Headache [Unknown]
  - Parkinson^s disease [Unknown]
  - Unevaluable event [Unknown]
  - Fall [Unknown]
  - Pain [Unknown]
  - Therapeutic product effect incomplete [Unknown]
  - Visual impairment [Unknown]

NARRATIVE: CASE EVENT DATE: 20230101
